FAERS Safety Report 25498798 (Version 1)
Quarter: 2025Q3

REPORT INFORMATION
  Report Type: Spontaneous
  Country: EU (occurrence: EU)
  Receive Date: 20250701
  Receipt Date: 20250701
  Transmission Date: 20251021
  Serious: Yes (Hospitalization, Congenital Anomaly, Other)
  Sender: ACCORD
  Company Number: EU-EMA-DD-20230503-7180171-094718

PATIENT

DRUGS (7)
  1. LACOSAMIDE [Suspect]
     Active Substance: LACOSAMIDE
     Dosage: 200 MG, 1 DOSE 12 HOURS
     Route: 064
  2. LEVETIRACETAM [Suspect]
     Active Substance: LEVETIRACETAM
     Dosage: 4000 MG, QD
     Route: 064
  3. MIDAZOLAM [Suspect]
     Active Substance: MIDAZOLAM
     Dosage: 12 ML, 1 DOSE HOURLY
     Route: 064
  4. BRIVARACETAM [Suspect]
     Active Substance: BRIVARACETAM
     Dosage: 100 MG, 1 DOSE 12 HOURS
     Route: 064
  5. PERAMPANEL [Suspect]
     Active Substance: PERAMPANEL
     Route: 064
  6. PROPOFOL [Suspect]
     Active Substance: PROPOFOL
     Dosage: 15 ML, 1 DOSE HOURLY
     Route: 064
  7. VALPROIC ACID [Suspect]
     Active Substance: VALPROIC ACID
     Route: 064

REACTIONS (6)
  - Foetal exposure during pregnancy [Unknown]
  - Premature baby [Unknown]
  - Patent ductus arteriosus [Unknown]
  - Intestinal atresia [Unknown]
  - Pulmonary haemorrhage [Unknown]
  - Coagulopathy [Unknown]
